FAERS Safety Report 5371507-8 (Version None)
Quarter: 2007Q2

REPORT INFORMATION
  Report Type: 
  Country: None (occurrence: None)
  Receive Date: 20070615
  Receipt Date: 20061211
  Transmission Date: 20071010
  Serious: Yes (Other)
  Sender: FDA-Public Use
  Company Number: 200617419US

PATIENT
  Age: 66 Year
  Sex: Male

DRUGS (5)
  1. LANTUS [Suspect]
     Indication: DIABETES MELLITUS INSULIN-DEPENDENT
     Dosage: 12 U
     Dates: start: 19960101
  2. INSULIN (HUMALOG /00030501/) [Concomitant]
  3. AMLODIPINE, BENAZEPRIL HYDROCHLORIDE (LOTREL /01289101/) [Concomitant]
  4. HYDROCHLOROTHIAZIDE [Concomitant]
  5. PHENYTOIN (DILANTIN /00017401/) [Concomitant]

REACTIONS (3)
  - HYPOGLYCAEMIA [None]
  - HYPOGLYCAEMIA UNAWARENESS [None]
  - MEDICATION ERROR [None]
